FAERS Safety Report 24542098 (Version 2)
Quarter: 2025Q2

REPORT INFORMATION
  Report Type: Spontaneous
  Country: US (occurrence: US)
  Receive Date: 20241023
  Receipt Date: 20250510
  Transmission Date: 20250716
  Serious: No
  Sender: SANOFI AVENTIS
  Company Number: US-SA-2024SA301702

PATIENT
  Age: 14 Year
  Sex: Male
  Weight: 61.2 kg

DRUGS (1)
  1. DUPIXENT [Suspect]
     Active Substance: DUPILUMAB
     Indication: Eosinophilic oesophagitis
     Dosage: 300 MG, QOW
     Route: 058

REACTIONS (2)
  - Illness [Unknown]
  - Off label use [Unknown]

NARRATIVE: CASE EVENT DATE: 20241013
